APPROVED DRUG PRODUCT: ENALAPRIL MALEATE
Active Ingredient: ENALAPRIL MALEATE
Strength: 20MG
Dosage Form/Route: TABLET;ORAL
Application: A075501 | Product #004
Applicant: WATSON LABORATORIES INC
Approved: Aug 22, 2000 | RLD: No | RS: No | Type: DISCN